FAERS Safety Report 6383568-8 (Version None)
Quarter: 2009Q4

REPORT INFORMATION
  Report Type: 
  Country: None (occurrence: None)
  Receive Date: 20091001
  Receipt Date: 20090924
  Transmission Date: 20100525
  Serious: Yes (Hospitalization)
  Sender: FDA-Public Use
  Company Number: IE-ELI_LILLY_AND_COMPANY-IE200904000098

PATIENT
  Age: 63 Year
  Sex: Male

DRUGS (8)
  1. BYETTA [Suspect]
     Indication: DIABETES MELLITUS
     Dosage: 5 UG, UNKNOWN
     Route: 065
     Dates: end: 20090303
  2. ATORVASTATIN [Concomitant]
     Dosage: 80 MG, UNKNOWN
  3. EZETIMIBE [Concomitant]
     Dosage: 10 MG, UNKNOWN
  4. GLUCOPHAGE [Concomitant]
     Dosage: 850 MG, 2/D
  5. TEGRETOL [Concomitant]
     Dosage: 100 MG, UNKNOWN
  6. ATENOLOL [Concomitant]
     Dosage: 50 MG, UNKNOWN
  7. ASPIRIN [Concomitant]
     Dosage: 75 MG, UNKNOWN
  8. CITALOPRAM [Concomitant]
     Dosage: 20 MG, UNKNOWN

REACTIONS (1)
  - PANCREATITIS [None]
